FAERS Safety Report 10310021 (Version 2)
Quarter: 2014Q3

REPORT INFORMATION
  Report Type: Spontaneous
  Country: DE (occurrence: DE)
  Receive Date: 20140717
  Receipt Date: 20140803
  Transmission Date: 20150326
  Serious: No
  Sender: FDA-Public Use
  Company Number: PHHY2014DE085724

PATIENT
  Age: 36 Year
  Sex: Male

DRUGS (3)
  1. L-THYROXIN [Concomitant]
     Active Substance: LEVOTHYROXINE SODIUM
     Indication: HYPOTHYROIDISM
     Dosage: 75 UG/D, UNK
     Route: 048
     Dates: start: 20130508, end: 20140213
  2. TASIGNA [Suspect]
     Active Substance: NILOTINIB
     Indication: CHRONIC MYELOID LEUKAEMIA
     Dosage: 600 MG, PER DAY
     Route: 048
     Dates: start: 20130508, end: 20140213
  3. FOLSAEURE [Concomitant]
     Active Substance: FOLIC ACID
     Dosage: UNK UKN, UNK
     Route: 048

REACTIONS (1)
  - Exposure via father [Unknown]
